FAERS Safety Report 25080797 (Version 11)
Quarter: 2025Q3

REPORT INFORMATION
  Report Type: Report from Study
  Country: EU (occurrence: EU)
  Receive Date: 20250315
  Receipt Date: 20250704
  Transmission Date: 20251020
  Serious: Yes (Hospitalization, Other)
  Sender: ABBVIE
  Company Number: EU-002147023-PHHY2018DE061478

PATIENT
  Age: 82 Year
  Sex: Female
  Weight: 56 kg

DRUGS (72)
  1. HUMIRA [Suspect]
     Active Substance: ADALIMUMAB
     Indication: Rheumatoid arthritis
     Dosage: 2 DOSAGE FORM, BI
     Route: 058
     Dates: start: 20120111, end: 20160927
  2. HUMIRA [Suspect]
     Active Substance: ADALIMUMAB
     Dosage: 1 DOSAGE FORM, BIW
     Route: 058
     Dates: start: 20161115, end: 20161115
  3. HUMIRA [Suspect]
     Active Substance: ADALIMUMAB
     Dosage: 1 DOSAGE FORM, Q2W
     Route: 058
     Dates: start: 20160927, end: 20160927
  4. HUMIRA [Suspect]
     Active Substance: ADALIMUMAB
     Dosage: 1 DOSAGE FORM, BIW (2 DF, QW), SUBCUTANEOUS
     Route: 058
  5. HUMIRA [Suspect]
     Active Substance: ADALIMUMAB
     Dosage: 40 MG, QW, SUBCUTANEOUS
     Route: 058
  6. HUMIRA [Suspect]
     Active Substance: ADALIMUMAB
     Route: 058
  7. DICLOFENAC [Suspect]
     Active Substance: DICLOFENAC
     Indication: Product used for unknown indication
     Dosage: 2 DOSAGE FORM, QD
     Route: 065
     Dates: start: 201610, end: 201610
  8. AMIODARONE HYDROCHLORIDE [Suspect]
     Active Substance: AMIODARONE HYDROCHLORIDE
     Indication: Product used for unknown indication
     Route: 065
  9. LEVOSIMENDAN [Concomitant]
     Active Substance: LEVOSIMENDAN
     Indication: Product used for unknown indication
     Dates: start: 201611, end: 201611
  10. NADROPARIN CALCIUM [Concomitant]
     Active Substance: NADROPARIN CALCIUM
     Indication: Product used for unknown indication
     Dosage: 5700 IU, QD
     Route: 058
  11. CLOPIDOGREL [Suspect]
     Active Substance: CLOPIDOGREL BISULFATE
     Indication: Product used for unknown indication
     Route: 048
     Dates: start: 20170124, end: 20170124
  12. LOSARTAN POTASSIUM [Suspect]
     Active Substance: LOSARTAN POTASSIUM
     Indication: Product used for unknown indication
     Dosage: 1 DOSAGE FORM, QD?DAILY 100/25 MG
     Route: 065
     Dates: start: 2016
  13. CLOPIDOGREL BISULFATE [Suspect]
     Active Substance: CLOPIDOGREL BISULFATE
     Indication: Product used for unknown indication
     Route: 048
  14. PANTOPRAZOLE SODIUM [Suspect]
     Active Substance: PANTOPRAZOLE SODIUM
     Indication: Product used for unknown indication
     Dosage: 20 MG, QD
     Route: 065
  15. PANTOPRAZOLE SODIUM [Suspect]
     Active Substance: PANTOPRAZOLE SODIUM
     Indication: Product used for unknown indication
     Dosage: 200 MG, QD
     Route: 065
  16. PREDNISOLONE [Suspect]
     Active Substance: PREDNISOLONE
     Indication: Product used for unknown indication
     Route: 065
  17. TORSEMIDE [Suspect]
     Active Substance: TORSEMIDE
     Indication: Product used for unknown indication
     Dosage: 5.000MG QD, ORAL
     Route: 065
  18. TORSEMIDE [Suspect]
     Active Substance: TORSEMIDE
     Indication: Product used for unknown indication
     Dosage: 15 MG, QD
     Route: 065
  19. TORSEMIDE [Suspect]
     Active Substance: TORSEMIDE
     Indication: Product used for unknown indication
     Dosage: 45 MG, QD
     Route: 065
     Dates: start: 20170124, end: 20170124
  20. ENOXAPARIN [Concomitant]
     Active Substance: ENOXAPARIN
     Indication: Product used for unknown indication
     Dosage: 0.6 MG, QD
  21. ENOXAPARIN [Concomitant]
     Active Substance: ENOXAPARIN
     Indication: Product used for unknown indication
     Dosage: 5 MG, QD
     Dates: start: 2016
  22. ENOXAPARIN [Concomitant]
     Active Substance: ENOXAPARIN
     Indication: Product used for unknown indication
     Dosage: 0.5 MG, QD
  23. LACTULOSE [Suspect]
     Active Substance: LACTULOSE
     Indication: Product used for unknown indication
     Route: 065
     Dates: start: 20170124, end: 20170124
  24. ASPIRIN [Suspect]
     Active Substance: ASPIRIN
     Indication: Product used for unknown indication
     Route: 065
  25. METOPROLOL SUCCINATE [Suspect]
     Active Substance: METOPROLOL SUCCINATE
     Indication: Product used for unknown indication
     Route: 065
     Dates: start: 20170124, end: 20170124
  26. CERISA [Suspect]
     Active Substance: SULFACETAMIDE SODIUM\SULFUR
     Indication: Product used for unknown indication
     Dosage: 15 MG, QD
     Route: 065
  27. CERISA [Suspect]
     Active Substance: SULFACETAMIDE SODIUM\SULFUR
     Indication: Product used for unknown indication
     Route: 065
     Dates: start: 20170124
  28. MAGALDRATE [Concomitant]
     Active Substance: MAGALDRATE
     Indication: Product used for unknown indication
     Dosage: 1600 MG, QD, ORAL
     Route: 048
  29. MAGALDRATE [Concomitant]
     Active Substance: MAGALDRATE
     Indication: Product used for unknown indication
     Dosage: 4800 MG, QD
     Route: 048
  30. FENTANYL [Suspect]
     Active Substance: FENTANYL
     Indication: Product used for unknown indication
     Route: 062
  31. CORDAREX [Concomitant]
     Active Substance: AMIODARONE
     Indication: Product used for unknown indication
     Dosage: 200 MG, QD
  32. CORDAREX [Concomitant]
     Active Substance: AMIODARONE
     Indication: Product used for unknown indication
     Dosage: 200 MG, QD
  33. PHLOROGLUCINOL [Suspect]
     Active Substance: PHLOROGLUCINOL
     Indication: Product used for unknown indication
     Route: 065
  34. PHLOROGLUCINOL [Suspect]
     Active Substance: PHLOROGLUCINOL
     Indication: Product used for unknown indication
     Dosage: 15 MG, QD
     Route: 065
  35. PHLOROGLUCINOL [Suspect]
     Active Substance: PHLOROGLUCINOL
     Indication: Product used for unknown indication
     Dosage: 45 MG, QD, ORAL
     Route: 065
     Dates: start: 20170124, end: 20170124
  36. SIMVASTATIN [Suspect]
     Active Substance: SIMVASTATIN
     Indication: Product used for unknown indication
     Route: 065
  37. VALSARTAN [Suspect]
     Active Substance: VALSARTAN
     Indication: Product used for unknown indication
     Route: 065
  38. FOLIC ACID [Concomitant]
     Active Substance: FOLIC ACID
     Indication: Product used for unknown indication
     Dates: start: 20170124
  39. HYDROCHLOROTHIAZIDE\LOSARTAN [Suspect]
     Active Substance: HYDROCHLOROTHIAZIDE\LOSARTAN
     Indication: Product used for unknown indication
     Route: 065
     Dates: start: 2016
  40. MOVICOL [Suspect]
     Active Substance: POLYETHYLENE GLYCOL 3350\POTASSIUM CHLORIDE\SODIUM BICARBONATE\SODIUM CHLORIDE
     Indication: Product used for unknown indication
     Route: 065
     Dates: start: 20170124
  41. CHOLECALCIFEROL [Suspect]
     Active Substance: CHOLECALCIFEROL
     Indication: Product used for unknown indication
     Dosage: 20000 IU, QW
     Route: 065
  42. FUROSEMIDE\SPIRONOLACTONE [Suspect]
     Active Substance: FUROSEMIDE\SPIRONOLACTONE
     Indication: Product used for unknown indication
     Dosage: QD
     Route: 065
     Dates: start: 201610, end: 201610
  43. FUROSEMIDE\SPIRONOLACTONE [Suspect]
     Active Substance: FUROSEMIDE\SPIRONOLACTONE
     Indication: Product used for unknown indication
     Dosage: UNK (UNK UNK, QD (50MG/20MG))
     Route: 065
  44. DICLOFENAC [Suspect]
     Active Substance: DICLOFENAC
     Indication: Product used for unknown indication
     Dosage: 2 DF, QD
     Route: 065
     Dates: start: 201610, end: 201610
  45. DICLOFENAC [Suspect]
     Active Substance: DICLOFENAC
     Indication: Product used for unknown indication
     Dosage: QD
     Route: 065
     Dates: start: 201610, end: 201610
  46. DICLOFENAC [Suspect]
     Active Substance: DICLOFENAC
     Indication: Product used for unknown indication
     Dosage: QD
     Route: 065
  47. DICLOFENAC [Suspect]
     Active Substance: DICLOFENAC
     Indication: Product used for unknown indication
     Dosage: QD
     Route: 065
     Dates: start: 201610, end: 201610
  48. DICLOFENAC [Suspect]
     Active Substance: DICLOFENAC
     Indication: Product used for unknown indication
     Dosage: QD
     Route: 065
     Dates: start: 201610, end: 201610
  49. BISOPROLOL FUMARATE [Suspect]
     Active Substance: BISOPROLOL FUMARATE
     Indication: Product used for unknown indication
     Dosage: 0.5 MG, QD
     Route: 065
     Dates: start: 2016
  50. BISOPROLOL FUMARATE [Suspect]
     Active Substance: BISOPROLOL FUMARATE
     Indication: Product used for unknown indication
     Dosage: 5 MG, QD
     Route: 065
     Dates: start: 2016
  51. BISOPROLOL FUMARATE [Suspect]
     Active Substance: BISOPROLOL FUMARATE
     Indication: Product used for unknown indication
     Dosage: 5 MG, QD
     Route: 065
  52. EDOXABAN TOSYLATE [Suspect]
     Active Substance: EDOXABAN TOSYLATE
     Indication: Atrial fibrillation
     Dosage: 30 MG, QD, DAILY
     Route: 065
     Dates: start: 20160930
  53. EDOXABAN TOSYLATE [Suspect]
     Active Substance: EDOXABAN TOSYLATE
     Indication: Atrial fibrillation
     Dosage: 30 MG, QD
     Route: 065
  54. SODIUM CHLORIDE [Concomitant]
     Active Substance: SODIUM CHLORIDE
     Indication: Product used for unknown indication
     Dosage: 1 DF, QD
     Route: 065
  55. SODIUM CHLORIDE [Concomitant]
     Active Substance: SODIUM CHLORIDE
     Indication: Product used for unknown indication
     Dosage: QD
     Route: 065
  56. SODIUM CHLORIDE [Concomitant]
     Active Substance: SODIUM CHLORIDE
     Indication: Product used for unknown indication
     Dosage: 1 DOSAGE FORM
     Route: 065
  57. SODIUM CHLORIDE [Concomitant]
     Active Substance: SODIUM CHLORIDE
     Indication: Product used for unknown indication
     Dosage: 3 DOSAGE FORM, QD
     Route: 065
  58. SODIUM CHLORIDE [Concomitant]
     Active Substance: SODIUM CHLORIDE
     Indication: Product used for unknown indication
     Route: 065
  59. XIPAMIDE [Suspect]
     Active Substance: XIPAMIDE
     Indication: Product used for unknown indication
     Route: 065
     Dates: start: 20170124, end: 20170124
  60. ASPIRIN [Suspect]
     Active Substance: ASPIRIN
     Indication: Product used for unknown indication
     Route: 065
  61. CANDESARTAN CILEXETIL [Suspect]
     Active Substance: CANDESARTAN CILEXETIL
     Indication: Product used for unknown indication
     Route: 065
  62. ROPIVACAINE [Suspect]
     Active Substance: ROPIVACAINE
     Indication: Product used for unknown indication
     Dosage: 75 UG, QH (75 MICROGRAM/HOUR AND PLASTER CHANGE EVERY 3 DAYS)
     Route: 062
  63. TORSEMIDE [Suspect]
     Active Substance: TORSEMIDE
     Indication: Product used for unknown indication
     Dosage: 5 MILLIGRAM, QD
     Route: 065
     Dates: start: 20170124, end: 20170124
  64. TORSEMIDE [Suspect]
     Active Substance: TORSEMIDE
     Indication: Product used for unknown indication
     Dosage: 1 DOSAGE FORM, QD
     Route: 065
  65. TORSEMIDE [Suspect]
     Active Substance: TORSEMIDE
     Indication: Product used for unknown indication
     Dosage: UNK UNK, QD,( DOSE: 1, 1X/DAY)
     Route: 065
  66. Riopan [Concomitant]
     Indication: Product used for unknown indication
     Dosage: 1600 MILLIGRAM, QD
     Route: 048
  67. Riopan [Concomitant]
     Indication: Product used for unknown indication
     Dosage: 4800 MILLIGRAM, QD
     Route: 048
  68. DICLOFENAC SODIUM [Suspect]
     Active Substance: DICLOFENAC SODIUM
     Indication: Product used for unknown indication
     Dosage: 2 DOSAGE FORM, QD
     Route: 065
     Dates: start: 201610, end: 201610
  69. HYDROCHLOROTHIAZIDE\LOSARTAN [Suspect]
     Active Substance: HYDROCHLOROTHIAZIDE\LOSARTAN
     Indication: Product used for unknown indication
     Dosage: 1 DOSAGE FORM, QD (100/25 MG)
     Route: 065
     Dates: start: 2016
  70. FENTANYL TRANSDERMAL SYSTEM [Suspect]
     Active Substance: FENTANYL
     Indication: Product used for unknown indication
     Route: 062
  71. PANTOPRAZOLE [Suspect]
     Active Substance: PANTOPRAZOLE
     Indication: Product used for unknown indication
     Route: 065
  72. PANTOPRAZOLE [Suspect]
     Active Substance: PANTOPRAZOLE
     Indication: Product used for unknown indication
     Dosage: 20 MG, QD
     Route: 065

REACTIONS (72)
  - Gait disturbance [Recovering/Resolving]
  - Myocardial infarction [Recovered/Resolved]
  - Escherichia infection [Unknown]
  - Acute kidney injury [Unknown]
  - Dyspnoea [Unknown]
  - Pancreatic steatosis [Unknown]
  - Haemarthrosis [Unknown]
  - Wound dehiscence [Recovered/Resolved]
  - Urinary retention [Recovered/Resolved]
  - Hyperkalaemia [Unknown]
  - Hyponatraemia [Unknown]
  - Anuria [Recovered/Resolved]
  - Decreased appetite [Unknown]
  - Groin pain [Recovered/Resolved]
  - Cardiovascular disorder [Unknown]
  - Joint dislocation [Recovered/Resolved]
  - Anaemia [Recovered/Resolved]
  - Femoral hernia incarcerated [Recovered/Resolved]
  - Osteopenia [Recovered/Resolved]
  - Peripheral swelling [Recovered/Resolved]
  - Investigation abnormal [Recovered/Resolved]
  - Fall [Recovered/Resolved]
  - Diverticulum intestinal [Recovering/Resolving]
  - Abdominal discomfort [Unknown]
  - Arterial haemorrhage [Recovered/Resolved]
  - Groin pain [Not Recovered/Not Resolved]
  - Hernia repair [Recovered/Resolved]
  - Lymphatic fistula [Recovered/Resolved]
  - Pulmonary hypertension [Recovering/Resolving]
  - Left ventricular dysfunction [Recovered/Resolved]
  - Wound infection pseudomonas [Recovering/Resolving]
  - Decreased appetite [Unknown]
  - Gastrointestinal haemorrhage [Recovered/Resolved]
  - Haematuria [Unknown]
  - Faecaloma [Unknown]
  - Circulatory collapse [Unknown]
  - Seroma [Unknown]
  - General physical health deterioration [Unknown]
  - Oedema peripheral [Unknown]
  - Impaired healing [Recovered/Resolved]
  - Hiatus hernia [Unknown]
  - Arthralgia [Unknown]
  - Escherichia infection [Unknown]
  - Peripheral swelling [Recovered/Resolved]
  - Aortic valve stenosis [Unknown]
  - Myelodysplastic syndrome [Unknown]
  - Mitral valve incompetence [Unknown]
  - Vomiting [Unknown]
  - Left ventricular dysfunction [Recovered/Resolved]
  - Gait disturbance [Unknown]
  - Eructation [Unknown]
  - Aplastic anaemia [Unknown]
  - Hepatic cyst [Unknown]
  - Inflammatory marker increased [Recovered/Resolved]
  - Joint dislocation [Unknown]
  - Dyspepsia [Unknown]
  - Aortic arteriosclerosis [Unknown]
  - Aortic arteriosclerosis [Unknown]
  - Coronary artery disease [Unknown]
  - Urinary tract infection [Recovering/Resolving]
  - Tricuspid valve incompetence [Unknown]
  - Postoperative wound infection [Recovered/Resolved]
  - Diverticulum intestinal [Unknown]
  - Tachyarrhythmia [Unknown]
  - Eructation [Unknown]
  - Syncope [Unknown]
  - Haematuria [Recovering/Resolving]
  - Cardiogenic shock [Unknown]
  - Faecaloma [Unknown]
  - Pulmonary hypertension [Recovered/Resolved]
  - Dyspepsia [Unknown]
  - Femoral hernia incarcerated [Recovered/Resolved]

NARRATIVE: CASE EVENT DATE: 20160101
